FAERS Safety Report 8559010 (Version 6)
Quarter: 2012Q4

REPORT INFORMATION
  Report Type: Report from Study
  Country: US (occurrence: US)
  Receive Date: 20120511
  Receipt Date: 20120921
  Transmission Date: 20130627
  Serious: Yes (Hospitalization, Other)
  Sender: FDA-Public Use
  Company Number: US-BRISTOL-MYERS SQUIBB COMPANY-16562365

PATIENT
  Age: 71 Year
  Sex: Male
  Weight: 94 kg

DRUGS (19)
  1. IPILIMUMAB [Suspect]
     Indication: MALIGNANT MELANOMA
     Dosage: Last dose:20Mar12,12Jun12.cou:17,10mg/kg over 90 min on day1 ,1Q12 weeks(Maintenance),917mg
     Route: 042
     Dates: start: 20110802
  2. LEUKINE [Suspect]
     Indication: MALIGNANT MELANOMA
     Dosage: Last dose on 07Nov2011,Courses:16
     Route: 058
     Dates: start: 20110802
  3. COSYNTROPIN [Concomitant]
     Dosage: SD One
     Route: 042
  4. DIPHENHYDRAMINE HCL [Concomitant]
     Dosage: SD one
     Route: 048
  5. COLACE CAPS 100 MG [Concomitant]
     Dosage: as needed
     Route: 048
  6. ENOXAPARIN SODIUM [Concomitant]
     Route: 058
  7. FAMOTIDINE [Concomitant]
     Route: 048
  8. GENTAMICIN SULFATE [Concomitant]
     Dosage: 1-2 drops each eye Q4hrs OPH
  9. LORAZEPAM [Concomitant]
     Dosage: QHS
1mg tab qd
     Route: 048
  10. NAPHAZOLINE HCL [Concomitant]
     Dosage: 1DF=1-2 drops each eye
  11. PHENIRAMINE MALEATE [Concomitant]
     Dosage: 1-2 drops each eye OPH
  12. OMEPRAZOLE [Concomitant]
     Dosage: 20mg tab
     Route: 048
  13. ONDANSETRON HCL [Concomitant]
     Dosage: Q8hrs.
     Route: 042
  14. OXYCODONE HCL [Concomitant]
     Dosage: 5-10 mg,Q4 hrs,PRN
5mg tab
     Route: 048
  15. PREDNISONE [Concomitant]
     Dosage: SD One
     Route: 048
  16. POLYMYXIN B [Concomitant]
     Dosage: 1 Drop in each eye Q3 hrs,OPH
  17. SODIUM CHLORIDE [Concomitant]
     Route: 042
  18. ZOLPIDEM TARTRATE [Concomitant]
     Dosage: 10mg tab qhs
     Route: 048
  19. ASA [Concomitant]
     Route: 048

REACTIONS (9)
  - Cholecystitis [Not Recovered/Not Resolved]
  - Adrenal insufficiency [Not Recovered/Not Resolved]
  - Syncope [Recovered/Resolved]
  - Dyspnoea [Recovered/Resolved]
  - Fatigue [Recovered/Resolved]
  - Abdominal pain [Recovered/Resolved with Sequelae]
  - Decreased appetite [Unknown]
  - Nausea [Unknown]
  - Pruritus [Unknown]
